FAERS Safety Report 19827773 (Version 9)
Quarter: 2024Q4

REPORT INFORMATION
  Report Type: Spontaneous
  Country: IN (occurrence: IN)
  Receive Date: 20210914
  Receipt Date: 20241122
  Transmission Date: 20250114
  Serious: Yes (Other)
  Sender: PFIZER
  Company Number: IN-PFIZER INC-202101134915

PATIENT
  Age: 42 Year
  Sex: Male
  Weight: 90 kg

DRUGS (10)
  1. INLYTA [Suspect]
     Active Substance: AXITINIB
     Indication: Metastatic renal cell carcinoma
     Dosage: 5 MG, 2X/DAY
     Route: 048
     Dates: start: 20210823
  2. INLYTA [Suspect]
     Active Substance: AXITINIB
     Dosage: 5 MG, 1X/DAY
     Route: 048
  3. INLYTA [Suspect]
     Active Substance: AXITINIB
     Dosage: 5 MG, 2X/DAY
     Route: 048
  4. PEMBROLIZUMAB [Concomitant]
     Active Substance: PEMBROLIZUMAB
     Dosage: 200 MG, CYCLIC (200 MG IN 100 ML NS, EVERY 21 DAYS)
     Route: 042
  5. FLUOROURACIL [Concomitant]
     Active Substance: FLUOROURACIL
     Dosage: 250 MG, CYCLIC (IN 100 ML NS)
     Route: 042
  6. CALCIUM CARBONATE\CHOLECALCIFEROL [Concomitant]
     Active Substance: CALCIUM CARBONATE\CHOLECALCIFEROL
     Dosage: 1 DF, 1X/DAY
  7. TAYO [COLECALCIFEROL] [Concomitant]
     Dosage: MONTHLY (60K)
  8. PHENIRAMINE MALEATE [Concomitant]
     Active Substance: PHENIRAMINE MALEATE
     Dosage: 1 DF
     Route: 042
  9. RANITIDINE HYDROCHLORIDE [Concomitant]
     Active Substance: RANITIDINE HYDROCHLORIDE
     Dosage: 50 MG (IN 100 ML NS)
     Route: 042
  10. IBANDRONATE SODIUM [Concomitant]
     Active Substance: IBANDRONATE SODIUM
     Dosage: 150 MG, MONTHLY

REACTIONS (8)
  - Pyrexia [Recovered/Resolved]
  - Abdominal pain upper [Unknown]
  - Rash [Unknown]
  - Hydrocele [Unknown]
  - Varicocele [Unknown]
  - Epididymal cyst [Unknown]
  - Neoplasm progression [Unknown]
  - Off label use [Unknown]

NARRATIVE: CASE EVENT DATE: 20210101
